FAERS Safety Report 6743536-0 (Version None)
Quarter: 2010Q2

REPORT INFORMATION
  Report Type: 
  Country: None (occurrence: None)
  Receive Date: 20100526
  Receipt Date: 20100526
  Transmission Date: 20101027
  Serious: Yes (Other)
  Sender: FDA-Public Use
  Company Number: None

PATIENT
  Sex: Male

DRUGS (2)
  1. ALPRAZOLAM EXTENDED-RELEASE [Suspect]
     Indication: PANIC DISORDER
     Dosage: 2 MG DAILY
     Dates: start: 20070207, end: 20070313
  2. ALPRAZOLAM EXTENDED-RELEASE [Suspect]
     Dosage: 2 MG DAILY
     Dates: start: 20100507, end: 20100520

REACTIONS (2)
  - DRUG INEFFECTIVE [None]
  - PRODUCT SUBSTITUTION ISSUE [None]
